FAERS Safety Report 14188603 (Version 1)
Quarter: 2017Q4

REPORT INFORMATION
  Report Type: Report from Study
  Country: AM (occurrence: AM)
  Receive Date: 20171114
  Receipt Date: 20171114
  Transmission Date: 20180321
  Serious: Yes (Death, Hospitalization, Other)
  Sender: FDA-Public Use
  Company Number: AM-GILEAD-2017-0303960

PATIENT
  Age: 60 Year
  Sex: Male

DRUGS (2)
  1. DACLATASVIR. [Suspect]
     Active Substance: DACLATASVIR
     Indication: HEPATITIS C
     Dosage: 60 MG, UNK
     Route: 048
     Dates: start: 20170615, end: 20170809
  2. SOFOSBUVIR [Suspect]
     Active Substance: SOFOSBUVIR
     Indication: HEPATITIS C
     Dosage: 400 MG, UNK
     Route: 048
     Dates: start: 20170615, end: 20170809

REACTIONS (3)
  - Death [Fatal]
  - Cerebrovascular accident [Unknown]
  - Cerebrovascular disorder [Unknown]

NARRATIVE: CASE EVENT DATE: 20170907
